FAERS Safety Report 8357164-7 (Version None)
Quarter: 2012Q2

REPORT INFORMATION
  Report Type: 
  Country: None (occurrence: None)
  Receive Date: 20120514
  Receipt Date: 20120505
  Transmission Date: 20120825
  Serious: Yes (Hospitalization, Other)
  Sender: FDA-Public Use
  Company Number: PA-ROCHE-1064112

PATIENT
  Sex: Male
  Weight: 30 kg

DRUGS (1)
  1. ROCEPHIN [Suspect]
     Indication: PRODUCT USED FOR UNKNOWN INDICATION
     Route: 042
     Dates: start: 20120328, end: 20120328

REACTIONS (3)
  - HYPERSENSITIVITY [None]
  - RESPIRATORY FAILURE [None]
  - BRONCHOSPASM [None]
